FAERS Safety Report 8191887-8 (Version None)
Quarter: 2012Q1

REPORT INFORMATION
  Report Type: 
  Country: None (occurrence: None)
  Receive Date: 20120307
  Receipt Date: 20120223
  Transmission Date: 20120608
  Serious: Yes (Hospitalization)
  Sender: FDA-Public Use
  Company Number: PHHY2012DE016572

PATIENT
  Sex: Female

DRUGS (3)
  1. TEGRETOL [Concomitant]
     Indication: CONVULSION
  2. VOTUBIA [Suspect]
     Indication: ASTROCYTOMA, LOW GRADE
     Route: 048
     Dates: start: 20111201, end: 20120201
  3. OSPOLOT [Concomitant]
     Indication: CONVULSION

REACTIONS (2)
  - EPILEPSY [None]
  - GRAND MAL CONVULSION [None]
